FAERS Safety Report 15657403 (Version 2)
Quarter: 2020Q3

REPORT INFORMATION
  Report Type: Report from Study
  Country: US (occurrence: US)
  Receive Date: 20181126
  Receipt Date: 20200806
  Transmission Date: 20201102
  Serious: Yes (Hospitalization, Other)
  Sender: FDA-Public Use
  Company Number: US-SA-2018SA127792

PATIENT

DRUGS (5)
  1. INSULIN GLARGINE [Suspect]
     Active Substance: INSULIN GLARGINE
     Indication: TYPE 2 DIABETES MELLITUS
     Dosage: 40 IU, QD
     Route: 058
     Dates: start: 2002
  2. NOVOLOG [Concomitant]
     Active Substance: INSULIN ASPART
  3. INSULIN GLARGINE [Suspect]
     Active Substance: INSULIN GLARGINE
     Dosage: 43 IU, QD (INTENTIONAL)
     Route: 058
  4. INSULIN GLARGINE [Suspect]
     Active Substance: INSULIN GLARGINE
     Dosage: 45 IU, QD (INTENTIONAL)
     Route: 058
  5. HUMALOG [Concomitant]
     Active Substance: INSULIN LISPRO

REACTIONS (11)
  - Blood glucose increased [Not Recovered/Not Resolved]
  - Vision blurred [Not Recovered/Not Resolved]
  - Cataract [Recovered/Resolved]
  - Eye laser surgery [Unknown]
  - Gangrene [Recovered/Resolved]
  - Blindness unilateral [Not Recovered/Not Resolved]
  - Hypoacusis [Unknown]
  - Tunnel vision [Not Recovered/Not Resolved]
  - Eye disorder [Not Recovered/Not Resolved]
  - Intentional product use issue [Unknown]
  - Renal failure [Recovered/Resolved]

NARRATIVE: CASE EVENT DATE: 2004
